FAERS Safety Report 5477478-8 (Version None)
Quarter: 2007Q4

REPORT INFORMATION
  Report Type: 
  Country: None (occurrence: None)
  Receive Date: 20071001
  Receipt Date: 20070921
  Transmission Date: 20080405
  Serious: Yes (Hospitalization, Other)
  Sender: FDA-Public Use
  Company Number: 07H-167-0313227-00

PATIENT
  Age: 27 Year
  Sex: Male
  Weight: 75 kg

DRUGS (7)
  1. PROPOFOL [Suspect]
     Indication: INDUCTION OF ANAESTHESIA
     Dosage: INTRAVENOUS
     Route: 042
  2. MIDAZOLAM HCL [Suspect]
     Indication: INDUCTION OF ANAESTHESIA
     Dosage: 1 MG, INTRAVENOUS
     Route: 042
  3. FENTANYL [Suspect]
     Indication: INDUCTION OF ANAESTHESIA
     Dosage: 100 MCG, INTRAVENOUS
     Route: 042
  4. ISOFLURANE [Suspect]
     Indication: MAINTENANCE OF ANAESTHESIA
     Dosage: INHALATION
     Route: 055
  5. OXYGEN (OXYGEN) [Suspect]
     Indication: DRUG USE FOR UNKNOWN INDICATION
     Dosage: INHALATION
     Route: 055
  6. NITROUS OXIDE W/ OXYGEN [Suspect]
     Indication: DRUG USE FOR UNKNOWN INDICATION
     Dosage: INHALATION
     Route: 055
  7. LIDOCAINE 1% (LIDOCAINE) [Concomitant]

REACTIONS (9)
  - ANAESTHETIC COMPLICATION [None]
  - APHASIA [None]
  - APNOEA [None]
  - HEADACHE [None]
  - HEMIPARESIS [None]
  - HYPERVENTILATION [None]
  - LOSS OF CONSCIOUSNESS [None]
  - MIGRAINE WITH AURA [None]
  - POST PROCEDURAL COMPLICATION [None]
